FAERS Safety Report 5314491-5 (Version None)
Quarter: 2007Q2

REPORT INFORMATION
  Report Type: 
  Country: None (occurrence: None)
  Receive Date: 20070425
  Receipt Date: 20070417
  Transmission Date: 20071010
  Serious: Yes (Hospitalization, Other)
  Sender: FDA-Public Use
  Company Number: 2006SP007504

PATIENT
  Age: 41 Year
  Sex: Female
  Weight: 101.1521 kg

DRUGS (4)
  1. PEG-INTRON [Suspect]
     Indication: HEPATITIS C
     Dosage: 150 MCG; QW; SC
     Route: 058
     Dates: start: 20061120
  2. RIBAVIRIN [Suspect]
     Indication: HEPATITIS C
     Dosage: 600 MG; BID; PO
     Route: 048
     Dates: start: 20061120
  3. CELEBREX [Concomitant]
  4. NORCO [Concomitant]

REACTIONS (26)
  - AMNESIA [None]
  - BACK PAIN [None]
  - CONVULSION [None]
  - DEHYDRATION [None]
  - DELIRIUM [None]
  - DEPRESSION [None]
  - DIZZINESS [None]
  - DYSPNOEA [None]
  - FATIGUE [None]
  - FOOD POISONING [None]
  - GASTROENTERITIS ESCHERICHIA COLI [None]
  - HYPERHIDROSIS [None]
  - INFLUENZA LIKE ILLNESS [None]
  - INJECTION SITE ERYTHEMA [None]
  - INSOMNIA [None]
  - LACERATION [None]
  - LETHARGY [None]
  - LISTLESS [None]
  - LOSS OF CONSCIOUSNESS [None]
  - MOVEMENT DISORDER [None]
  - MUSCLE SPASMS [None]
  - MYALGIA [None]
  - NERVOUSNESS [None]
  - PAIN [None]
  - REFUSAL OF TREATMENT BY PATIENT [None]
  - WEIGHT FLUCTUATION [None]
